FAERS Safety Report 8731962 (Version 3)
Quarter: 2013Q1

REPORT INFORMATION
  Report Type: Spontaneous
  Country: US (occurrence: US)
  Receive Date: 20120820
  Receipt Date: 20130305
  Transmission Date: 20140127
  Serious: Yes (Hospitalization)
  Sender: FDA-Public Use
  Company Number: US-BAYER-2012-083009

PATIENT
  Age: 28 Year
  Sex: Female
  Weight: 166.89 kg

DRUGS (2)
  1. YASMIN [Suspect]
     Indication: ACNE
     Dosage: UNK
     Dates: start: 20060302, end: 20060502
  2. YASMIN [Suspect]
     Indication: CONTRACEPTION

REACTIONS (4)
  - Myocardial infarction [None]
  - Pain [None]
  - Injury [None]
  - Pain [None]
